FAERS Safety Report 7478864-7 (Version None)
Quarter: 2011Q2

REPORT INFORMATION
  Report Type: 
  Country: None (occurrence: None)
  Receive Date: 20110513
  Receipt Date: 20110503
  Transmission Date: 20111010
  Serious: Yes (Disabling)
  Sender: FDA-Public Use
  Company Number: FR-ASTRAZENECA-2011SE13904

PATIENT
  Age: 68 Year
  Sex: Female
  Weight: 58 kg

DRUGS (8)
  1. CRESTOR [Suspect]
     Route: 048
     Dates: start: 20110316
  2. ALDACTONE [Concomitant]
     Indication: HYPERTENSION
     Dates: start: 20020901
  3. TEMERIT [Concomitant]
     Indication: HYPERTENSION
     Dates: start: 20110101
  4. ASPIRIN [Concomitant]
     Dates: start: 20020901
  5. CRESTOR [Suspect]
     Route: 048
     Dates: start: 20060501, end: 20110315
  6. INDAPAMIDE [Concomitant]
     Indication: HYPERTENSION
     Dates: start: 20020901
  7. NITROGLYCERIN [Concomitant]
     Indication: PRINZMETAL ANGINA
     Dates: start: 20020901
  8. ARIMIDEX [Suspect]
     Indication: BREAST CANCER
     Route: 048
     Dates: start: 20110214

REACTIONS (3)
  - BLOOD CREATINE PHOSPHOKINASE INCREASED [None]
  - BLOOD CHOLESTEROL INCREASED [None]
  - PERIARTHRITIS [None]
